FAERS Safety Report 12565705 (Version 1)
Quarter: 2016Q3

REPORT INFORMATION
  Report Type: Spontaneous
  Country: US (occurrence: US)
  Receive Date: 20160718
  Receipt Date: 20160718
  Transmission Date: 20161109
  Serious: Yes (Hospitalization)
  Sender: FDA-Public Use
  Company Number: US-PFIZER INC-2016337036

PATIENT
  Age: 8 Decade
  Sex: Male

DRUGS (2)
  1. DOXORUBICIN HCL [Suspect]
     Active Substance: DOXORUBICIN HYDROCHLORIDE
     Indication: MANTLE CELL LYMPHOMA RECURRENT
     Dosage: UNK
     Route: 042
  2. IMBRUVICA [Suspect]
     Active Substance: IBRUTINIB
     Indication: MANTLE CELL LYMPHOMA RECURRENT
     Dosage: 560 MG, DAILY (QD)
     Route: 048

REACTIONS (3)
  - Dyspnoea [Recovering/Resolving]
  - White blood cell count decreased [Unknown]
  - Ejection fraction decreased [Recovering/Resolving]
